FAERS Safety Report 10405646 (Version 1)
Quarter: 2014Q3

REPORT INFORMATION
  Report Type: Spontaneous
  Country: US (occurrence: None)
  Receive Date: 20140821
  Receipt Date: 20140821
  Transmission Date: 20150326
  Serious: Yes (Hospitalization, Other)
  Sender: FDA-Public Use
  Company Number: US-H14001-14-00376

PATIENT
  Age: 6 Month
  Sex: Male

DRUGS (3)
  1. AMOXICILLIN. [Suspect]
     Active Substance: AMOXICILLIN
     Indication: PRODUCT USED FOR UNKNOWN INDICATION
  2. AMOXICILLIN. [Suspect]
     Active Substance: AMOXICILLIN
     Indication: OTITIS MEDIA
  3. AMPICILLIN [Concomitant]
     Active Substance: AMPICILLIN

REACTIONS (7)
  - Eyelid ptosis [None]
  - Somnolence [None]
  - Constipation [None]
  - Movement disorder [None]
  - Hypotonia [None]
  - Areflexia [None]
  - Clostridium test positive [None]
